FAERS Safety Report 5963867-1 (Version None)
Quarter: 2008Q4

REPORT INFORMATION
  Report Type: 
  Country: None (occurrence: None)
  Receive Date: 20081124
  Receipt Date: 20081113
  Transmission Date: 20090506
  Serious: Yes (Hospitalization)
  Sender: FDA-Public Use
  Company Number: US-JNJFOC-20081103739

PATIENT
  Age: 71 Year
  Sex: Female
  Weight: 52.16 kg

DRUGS (4)
  1. INVEGA [Suspect]
     Indication: DEPRESSION
     Route: 048
  2. INVEGA [Suspect]
     Indication: BIPOLAR DISORDER
     Route: 048
  3. LAMICTAL [Concomitant]
     Indication: DRUG USE FOR UNKNOWN INDICATION
     Route: 048
  4. VASOTEC [Concomitant]
     Indication: DRUG USE FOR UNKNOWN INDICATION
     Route: 048

REACTIONS (4)
  - DEMENTIA [None]
  - MASKED FACIES [None]
  - MEMORY IMPAIRMENT [None]
  - PARANOIA [None]
